FAERS Safety Report 7436307-3 (Version None)
Quarter: 2011Q2

REPORT INFORMATION
  Report Type: 
  Country: None (occurrence: None)
  Receive Date: 20110426
  Receipt Date: 20110418
  Transmission Date: 20111010
  Serious: Yes (Hospitalization, Other)
  Sender: FDA-Public Use
  Company Number: US-BIOGENIDEC-2011BI007249

PATIENT
  Age: 39 Year
  Sex: Female

DRUGS (2)
  1. TYSABRI [Suspect]
     Indication: MULTIPLE SCLEROSIS
     Route: 042
     Dates: start: 20110112, end: 20110207
  2. TYSABRI [Suspect]
     Route: 042
     Dates: start: 20070913, end: 20080812

REACTIONS (8)
  - MULTIPLE SCLEROSIS RELAPSE [None]
  - HYPERSENSITIVITY [None]
  - INFUSION SITE COLDNESS [None]
  - FALL [None]
  - FEELING COLD [None]
  - LOSS OF CONSCIOUSNESS [None]
  - GAIT DISTURBANCE [None]
  - EYE PAIN [None]
